FAERS Safety Report 16664008 (Version 3)
Quarter: 2019Q4

REPORT INFORMATION
  Report Type: Spontaneous
  Country: JP (occurrence: JP)
  Receive Date: 20190802
  Receipt Date: 20191001
  Transmission Date: 20200122
  Serious: Yes (Hospitalization)
  Sender: FDA-Public Use
  Company Number: JP-JNJFOC-20190743516

PATIENT
  Age: 87 Year
  Sex: Female
  Weight: 36 kg

DRUGS (13)
  1. MAINTATE [Concomitant]
     Active Substance: BISOPROLOL FUMARATE
  2. ZOLPIDEM TARTRATE. [Concomitant]
     Active Substance: ZOLPIDEM TARTRATE
  3. RIVAROXABAN [Suspect]
     Active Substance: RIVAROXABAN
     Indication: CEREBROVASCULAR ACCIDENT PROPHYLAXIS
     Dosage: DALILY DOSE 5 MG
     Route: 048
     Dates: start: 20170412
  4. THYRADIN [Concomitant]
     Active Substance: LEVOTHYROXINE
  5. LOTRIGA [Concomitant]
     Active Substance: OMEGA-3-ACID ETHYL ESTERS
  6. RIVAROXABAN [Suspect]
     Active Substance: RIVAROXABAN
     Indication: ATRIAL FIBRILLATION
     Dosage: 10 MG, QD
     Route: 048
     Dates: start: 20150902, end: 20170411
  7. TAKECAB [Concomitant]
     Active Substance: VONOPRAZAN FUMURATE
  8. SENNOSIDE A [Concomitant]
     Active Substance: SENNOSIDE A
  9. SELARA [Concomitant]
     Active Substance: EPLERENONE
  10. EPLERENONE. [Concomitant]
     Active Substance: EPLERENONE
  11. FUROSEMIDE. [Concomitant]
     Active Substance: FUROSEMIDE
  12. FUROSEMIDE. [Concomitant]
     Active Substance: FUROSEMIDE
  13. TOPILORIC [Concomitant]
     Active Substance: TOPIROXOSTAT

REACTIONS (4)
  - Product prescribing issue [Unknown]
  - Epistaxis [Recovered/Resolved]
  - Incorrect dose administered [Unknown]
  - Cerebellar infarction [Unknown]

NARRATIVE: CASE EVENT DATE: 201702
